FAERS Safety Report 22069028 (Version 1)
Quarter: 2023Q1

REPORT INFORMATION
  Report Type: Spontaneous
  Country: US (occurrence: US)
  Receive Date: 20230307
  Receipt Date: 20230307
  Transmission Date: 20230418
  Serious: No
  Sender: FDA-Public Use
  Company Number: US-AMNEAL PHARMACEUTICALS-2022-AMRX-01185

PATIENT
  Sex: Male
  Weight: 88.435 kg

DRUGS (4)
  1. RYTARY [Suspect]
     Active Substance: CARBIDOPA\LEVODOPA
     Indication: Parkinson^s disease
     Dosage: 61.25/245MG, ONE CAPSULE THREE TIMES A DAY
     Route: 048
     Dates: start: 20220319
  2. RYTARY [Suspect]
     Active Substance: CARBIDOPA\LEVODOPA
     Dosage: 48.75/195MG,
     Route: 065
  3. ELIQUIS [Concomitant]
     Active Substance: APIXABAN
     Indication: Cardiovascular event prophylaxis
     Dosage: UNK, 5MG
     Route: 065
     Dates: start: 2019
  4. CARVEDILOL [Concomitant]
     Active Substance: CARVEDILOL
     Indication: Heart rate decreased
     Dosage: UNK, 3.125MG
     Route: 065
     Dates: start: 2019

REACTIONS (1)
  - Blood pressure decreased [Unknown]
